FAERS Safety Report 4446221-3 (Version None)
Quarter: 2004Q3

REPORT INFORMATION
  Report Type: 
  Country: None (occurrence: None)
  Receive Date: 20040907
  Receipt Date: 20040818
  Transmission Date: 20050211
  Serious: Yes (Hospitalization)
  Sender: FDA-Public Use
  Company Number: US_0408104876

PATIENT
  Age: 47 Year
  Sex: Female

DRUGS (9)
  1. KEFLEX [Suspect]
     Indication: PROPHYLAXIS
     Dosage: 500 MG/2 DAY
     Dates: start: 20030423, end: 20030503
  2. POTASSIUM [Concomitant]
  3. CALCIUM [Concomitant]
  4. FLEXERIL [Concomitant]
  5. EFFEXOR [Concomitant]
  6. NEXIUM [Concomitant]
  7. VICODIN [Concomitant]
  8. TYLENOL [Concomitant]
  9. PREDNISONE [Concomitant]

REACTIONS (1)
  - GASTROENTERITIS [None]
